FAERS Safety Report 7269434-4 (Version None)
Quarter: 2011Q1

REPORT INFORMATION
  Report Type: 
  Country: None (occurrence: None)
  Receive Date: 20110202
  Receipt Date: 20110125
  Transmission Date: 20110831
  Serious: Yes (Death, Hospitalization, Other)
  Sender: FDA-Public Use
  Company Number: US-PFIZER INC-2010034434

PATIENT
  Sex: Male
  Weight: 81 kg

DRUGS (6)
  1. DILANTIN [Suspect]
     Indication: CONVULSION
     Dosage: 100 MG, 3X/DAY
     Route: 048
     Dates: start: 20090908
  2. DILANTIN [Suspect]
     Dosage: UNK
     Route: 042
  3. METFORMIN HYDROCHLORIDE/SITAGLIPTIN [Concomitant]
     Dosage: 500/50 MG, TWICE DAILY
     Route: 048
  4. PANTOPRAZOLE [Concomitant]
     Dosage: 40 MG, UNK
  5. DILANTIN [Suspect]
     Dosage: 200 MG, 1X/DAY
     Route: 048
     Dates: start: 20090831, end: 20091219
  6. SIMVASTATIN [Concomitant]
     Dosage: 40 MG, DAILY
     Route: 048

REACTIONS (2)
  - STEVENS-JOHNSON SYNDROME [None]
  - TOXIC EPIDERMAL NECROLYSIS [None]
